FAERS Safety Report 4752367-2 (Version None)
Quarter: 2005Q3

REPORT INFORMATION
  Report Type: 
  Country: None (occurrence: None)
  Receive Date: 20050825
  Receipt Date: 20050823
  Transmission Date: 20060218
  Serious: Yes (Life-Threatening, Hospitalization)
  Sender: FDA-Public Use
  Company Number: PHBS2005FI12194

PATIENT
  Age: 58 Year
  Sex: Female

DRUGS (4)
  1. LEPONEX [Suspect]
     Indication: PSYCHOTIC DISORDER
     Dosage: 400 MG/D
     Route: 048
     Dates: start: 20050520, end: 20050724
  2. LAMICTAL [Concomitant]
     Dosage: 50 MG/D
     Route: 048
     Dates: end: 20050724
  3. SCOPODERM [Concomitant]
     Route: 062
     Dates: end: 20050724
  4. CIPRAMIL [Concomitant]
     Dosage: 20 MG/D
     Route: 048
     Dates: end: 20050724

REACTIONS (15)
  - ABSCESS [None]
  - ACQUIRED CARDIAC SEPTAL DEFECT [None]
  - AGRANULOCYTOSIS [None]
  - BLOOD CREATININE INCREASED [None]
  - C-REACTIVE PROTEIN INCREASED [None]
  - DIARRHOEA [None]
  - HYPOKALAEMIA [None]
  - NEPHROPATHY TOXIC [None]
  - NEUTROPHIL COUNT DECREASED [None]
  - PLEURAL EFFUSION [None]
  - PNEUMONIA FUNGAL [None]
  - PRURITUS [None]
  - RASH GENERALISED [None]
  - SEPSIS [None]
  - SKIN INFECTION [None]
